FAERS Safety Report 5013063-X (Version None)
Quarter: 2006Q2

REPORT INFORMATION
  Report Type: 
  Country: None (occurrence: None)
  Receive Date: 20060530
  Receipt Date: 20060213
  Transmission Date: 20061013
  Serious: No
  Sender: FDA-Public Use
  Company Number: US-GLAXOSMITHKLINE-A0593472A

PATIENT
  Age: 32 Year
  Sex: Male

DRUGS (4)
  1. WELLBUTRIN XL [Suspect]
     Indication: DRUG USE FOR UNKNOWN INDICATION
     Dosage: 300MG PER DAY
     Route: 048
     Dates: start: 20060129
  2. XANAX [Concomitant]
  3. AMBIEN [Concomitant]
  4. NEXIUM [Concomitant]

REACTIONS (1)
  - EMOTIONAL DISORDER [None]
